FAERS Safety Report 4482641-9 (Version None)
Quarter: 2004Q3

REPORT INFORMATION
  Report Type: 
  Country: None (occurrence: None)
  Receive Date: 20040921
  Receipt Date: 20040618
  Transmission Date: 20050211
  Serious: Yes (Hospitalization)
  Sender: FDA-Public Use
  Company Number: 163-20785-04060380

PATIENT
  Age: 51 Year
  Sex: Female
  Weight: 61.8 kg

DRUGS (4)
  1. THALOMID [Suspect]
     Indication: NON-SMALL CELL LUNG CANCER
     Dosage: 200 TO 1000MG, DAILY, ORAL
     Route: 048
     Dates: start: 20040430, end: 20040608
  2. PACLITAXEL [Suspect]
     Indication: NON-SMALL CELL LUNG CANCER
     Dosage: SEE IMAGE
     Route: 042
     Dates: start: 20040430, end: 20040430
  3. PACLITAXEL [Suspect]
     Indication: NON-SMALL CELL LUNG CANCER
     Dosage: SEE IMAGE
     Route: 042
     Dates: start: 20040521, end: 20040521
  4. CARBOPLATIN [Suspect]
     Indication: NON-SMALL CELL LUNG CANCER
     Dosage: 6, SINGLE, INTRAVENOUS
     Route: 042
     Dates: start: 20040430, end: 20040430

REACTIONS (2)
  - HYPOXIA [None]
  - PULMONARY EMBOLISM [None]
